FAERS Safety Report 5616442-2 (Version None)
Quarter: 2008Q1

REPORT INFORMATION
  Report Type: 
  Country: None (occurrence: None)
  Receive Date: 20080207
  Receipt Date: 20080131
  Transmission Date: 20080703
  Serious: Yes (Other)
  Sender: FDA-Public Use
  Company Number: AT-ELI_LILLY_AND_COMPANY-AT200802000039

PATIENT
  Age: 50 Year
  Weight: 87 kg

DRUGS (7)
  1. OLANZAPINE [Suspect]
     Indication: SCHIZOAFFECTIVE DISORDER
     Dosage: 10 MG, DAILY (1/D)
     Route: 030
  2. ZOLPIDEM TARTRATE [Concomitant]
     Dosage: 10 MG, DAILY (1/D)
  3. ZOLPIDEM TARTRATE [Concomitant]
     Dosage: 20 MG, DAILY (1/D)
     Route: 048
     Dates: start: 20071212, end: 20071212
  4. DIHYDROERGOTAMINE MESYLATE [Concomitant]
     Dosage: 2.5 MG, 2/D
  5. LEGALON SIL [Concomitant]
     Dosage: 140 MG, 3/D
  6. QUILONORM RETARD [Concomitant]
     Indication: SCHIZOAFFECTIVE DISORDER
     Dosage: UNK UNK, 2/D
  7. TRITTICO [Concomitant]
     Indication: SCHIZOAFFECTIVE DISORDER
     Dosage: 150 MG, DAILY (1/D)

REACTIONS (4)
  - AMNESTIC DISORDER [None]
  - DELIRIUM [None]
  - INTENTIONAL SELF-INJURY [None]
  - WERNICKE-KORSAKOFF SYNDROME [None]
